FAERS Safety Report 9162221 (Version 1)
Quarter: 2013Q1

REPORT INFORMATION
  Report Type: Spontaneous
  Country: US (occurrence: US)
  Receive Date: 20130314
  Receipt Date: 20130314
  Transmission Date: 20140127
  Serious: No
  Sender: FDA-Public Use
  Company Number: US-BAYER-2013-031377

PATIENT
  Age: 69 Year
  Sex: Female
  Weight: 58.96 kg

DRUGS (8)
  1. ALEVE CAPLET/TABLET,MIDOL EXTENDED RELIEF CAPLET [Suspect]
     Dosage: 1 DF, PRN
     Route: 048
     Dates: start: 2012, end: 20130307
  2. VITAMIN B12 (CYANOCOBALAMIN AND DERIVATIVES) [Concomitant]
  3. OMEPRAZOLE [Concomitant]
  4. LEVOTHYROXINE [Concomitant]
  5. VITAMIN D NOS [Concomitant]
  6. MAGNESIUM [MAGNESIUM] [Concomitant]
  7. VITAMIN C [ASCORBIC ACID] [Concomitant]
  8. CALCIUM [CALCIUM] [Concomitant]

REACTIONS (5)
  - Feeling jittery [Not Recovered/Not Resolved]
  - Feeling abnormal [Not Recovered/Not Resolved]
  - Heart rate increased [Not Recovered/Not Resolved]
  - Anxiety [Not Recovered/Not Resolved]
  - Expired drug administered [None]
